FAERS Safety Report 6104468-4 (Version None)
Quarter: 2009Q1

REPORT INFORMATION
  Report Type: 
  Country: None (occurrence: None)
  Receive Date: 20090305
  Receipt Date: 20090223
  Transmission Date: 20090719
  Serious: Yes (Hospitalization)
  Sender: FDA-Public Use
  Company Number: JP-SANOFI-SYNTHELABO-A01200900550

PATIENT
  Sex: Male
  Weight: 62 kg

DRUGS (10)
  1. MINOPEN [Concomitant]
     Indication: STENOTROPHOMONAS INFECTION
     Route: 042
     Dates: start: 20090128, end: 20090212
  2. CRAVIT [Concomitant]
     Indication: STENOTROPHOMONAS INFECTION
     Route: 048
     Dates: start: 20090128, end: 20090202
  3. VASOLAN [Concomitant]
     Indication: TACHYCARDIA PAROXYSMAL
     Route: 042
     Dates: start: 20090120
  4. NASEA [Concomitant]
     Indication: PREMEDICATION
     Route: 042
     Dates: start: 20080521, end: 20081217
  5. DECADRON [Concomitant]
     Indication: PREMEDICATION
     Route: 042
     Dates: start: 20080521, end: 20081217
  6. FLUOROURACIL [Suspect]
     Dosage: 500MG/BODY (324.7MG/M2) IV BOLUS THEN 750MG/BODY (487MG/M2) AS CONTINUOUS INFUSION
     Route: 040
     Dates: start: 20081217, end: 20081217
  7. FLUOROURACIL [Suspect]
     Route: 041
     Dates: start: 20081217, end: 20081218
  8. ELPLAT [Suspect]
     Indication: RECTAL CANCER
     Route: 041
     Dates: start: 20081217, end: 20081217
  9. CALCIUM LEVOFOLINATE [Concomitant]
     Indication: RECTAL CANCER
     Route: 041
     Dates: start: 20081217, end: 20081218
  10. CIBENOL [Concomitant]
     Indication: TACHYCARDIA PAROXYSMAL
     Route: 042
     Dates: start: 20090120, end: 20090120

REACTIONS (2)
  - DISSEMINATED INTRAVASCULAR COAGULATION [None]
  - INTERSTITIAL LUNG DISEASE [None]
